FAERS Safety Report 19479524 (Version 3)
Quarter: 2021Q3

REPORT INFORMATION
  Report Type: Spontaneous
  Country: AU (occurrence: AU)
  Receive Date: 20210630
  Receipt Date: 20210913
  Transmission Date: 20211014
  Serious: No
  Sender: FDA-Public Use
  Company Number: AU-MYLANLABS-2021M1038707

PATIENT

DRUGS (2)
  1. EPIPEN [Suspect]
     Active Substance: EPINEPHRINE
     Dosage: UNK (300/2 MICROGRAM PER MILLILITRE)
  2. EPIPEN [Suspect]
     Active Substance: EPINEPHRINE
     Indication: PRODUCT USED FOR UNKNOWN INDICATION
     Dosage: UNK (300/2 MICROGRAM PER MILLILITRE)

REACTIONS (2)
  - Product colour issue [None]
  - Product quality issue [None]
